FAERS Safety Report 6762489-2 (Version None)
Quarter: 2010Q2

REPORT INFORMATION
  Report Type: 
  Country: None (occurrence: None)
  Receive Date: 20100525
  Receipt Date: 20100510
  Transmission Date: 20101027
  Serious: Yes (Hospitalization)
  Sender: FDA-Public Use
  Company Number: AEUSA201000125

PATIENT
  Age: 71 Year
  Sex: Male

DRUGS (11)
  1. GAMUNEX [Suspect]
     Indication: CHRONIC INFLAMMATORY DEMYELINATING POLYRADICULONEUROPATHY
     Dosage: 50 GM;TOTAL; IV
     Route: 042
     Dates: start: 20100317, end: 20100429
  2. GAMUNEX [Suspect]
  3. CARIMUNE [Suspect]
     Indication: CHRONIC INFLAMMATORY DEMYELINATING POLYRADICULONEUROPATHY
     Dates: end: 20100101
  4. VIGAMOX [Concomitant]
  5. PREDNISOLONE ACETATE [Concomitant]
  6. CELLCEPT [Concomitant]
  7. LYRICA [Concomitant]
  8. M.V.I. [Concomitant]
  9. ULTRAM [Concomitant]
  10. PREDNISONE [Concomitant]
  11. FESOTERODINE [Concomitant]

REACTIONS (5)
  - ASTHENIA [None]
  - DRUG EFFECT DECREASED [None]
  - FALL [None]
  - HYPERHIDROSIS [None]
  - TREMOR [None]
